FAERS Safety Report 23885471 (Version 3)
Quarter: 2024Q2

REPORT INFORMATION
  Report Type: Spontaneous
  Country: US (occurrence: US)
  Receive Date: 20240522
  Receipt Date: 20240617
  Transmission Date: 20240715
  Serious: No
  Sender: FDA-Public Use
  Company Number: US-BIOGEN-2024BI01257003

PATIENT
  Sex: Female

DRUGS (6)
  1. VUMERITY [Suspect]
     Active Substance: DIROXIMEL FUMARATE
     Indication: Multiple sclerosis
     Route: 050
     Dates: start: 20240315, end: 2024
  2. VUMERITY [Suspect]
     Active Substance: DIROXIMEL FUMARATE
     Dosage: TAKE 2 CAPSULES (462MG) BY MOUTH TWICE DAILY.
     Route: 050
     Dates: start: 2024, end: 20240517
  3. VITAMIN D [Concomitant]
     Active Substance: VITAMIN D NOS
     Route: 050
  4. GABAPENTIN [Concomitant]
     Active Substance: GABAPENTIN
     Route: 050
  5. PYRIDOXINE [Concomitant]
     Active Substance: PYRIDOXINE
     Route: 050
  6. METHYLCOBALAMIN [Concomitant]
     Active Substance: METHYLCOBALAMIN
     Route: 050

REACTIONS (9)
  - Ear pain [Unknown]
  - Ear discomfort [Unknown]
  - Headache [Unknown]
  - Head discomfort [Unknown]
  - Feeling hot [Unknown]
  - Burning sensation [Unknown]
  - Rash [Unknown]
  - Flushing [Recovered/Resolved]
  - Pruritus [Recovered/Resolved]

NARRATIVE: CASE EVENT DATE: 20240101
